FAERS Safety Report 6572271-7 (Version None)
Quarter: 2010Q1

REPORT INFORMATION
  Report Type: 
  Country: None (occurrence: None)
  Receive Date: 20100205
  Receipt Date: 20100203
  Transmission Date: 20100710
  Serious: Yes (Death, Other)
  Sender: FDA-Public Use
  Company Number: PHEH2008US01732

PATIENT
  Sex: Male

DRUGS (8)
  1. ZELNORM [Suspect]
     Indication: CONSTIPATION
     Dates: start: 20050801
  2. TRAZODONE [Concomitant]
     Dosage: 150 MG / TWICE DAILY QHS
  3. EFFEXOR [Concomitant]
     Dosage: 75 MG / DAILY
     Route: 048
  4. LORTAB [Concomitant]
     Dosage: 7.5 MG / TID
     Route: 048
  5. DYAZIDE [Concomitant]
     Dosage: 30 MG / DAILY
     Route: 048
  6. ALLOPURINOL [Concomitant]
     Dosage: UNK
  7. ATIVAN [Concomitant]
     Dosage: 1 MG / TID
     Route: 048
  8. MAXZIDE [Concomitant]
     Dosage: 75 MG / DAILY

REACTIONS (11)
  - ABDOMINAL PAIN LOWER [None]
  - ARTERIOSCLEROSIS [None]
  - ARTHROPOD BITE [None]
  - CARDIO-RESPIRATORY ARREST [None]
  - CELLULITIS [None]
  - DIVERTICULITIS [None]
  - GASTROOESOPHAGEAL REFLUX DISEASE [None]
  - INJURY [None]
  - INTERSTITIAL LUNG DISEASE [None]
  - MYOCARDIAL INFARCTION [None]
  - UNRESPONSIVE TO STIMULI [None]
